FAERS Safety Report 14900089 (Version 1)
Quarter: 2018Q2

REPORT INFORMATION
  Report Type: Spontaneous
  Country: FR (occurrence: FR)
  Receive Date: 20180516
  Receipt Date: 20180516
  Transmission Date: 20180711
  Serious: Yes (Disabling, Other)
  Sender: FDA-Public Use
  Company Number: FR-MERCK KGAA-2047878

PATIENT
  Age: 58 Year
  Sex: Female

DRUGS (1)
  1. NOVOTHYROX [Suspect]
     Active Substance: LEVOTHYROXINE SODIUM
     Indication: AUTOIMMUNE THYROIDITIS

REACTIONS (34)
  - Dizziness [Recovering/Resolving]
  - Disturbance in attention [None]
  - Blood magnesium increased [None]
  - Insomnia [None]
  - Headache [Recovering/Resolving]
  - Fall [None]
  - Bedridden [None]
  - Eye disorder [Recovering/Resolving]
  - Memory impairment [None]
  - Tachycardia [None]
  - Nervousness [None]
  - Muscular weakness [None]
  - Ligament sprain [None]
  - Gastrointestinal disorder [None]
  - Migraine [None]
  - Irritability [None]
  - Abdominal pain [Recovering/Resolving]
  - Fatigue [Not Recovered/Not Resolved]
  - Affective disorder [Recovering/Resolving]
  - Nervous system disorder [None]
  - Pyrexia [Recovering/Resolving]
  - Paraesthesia [None]
  - General physical health deterioration [None]
  - Emotional distress [None]
  - Asthenia [None]
  - Loss of personal independence in daily activities [None]
  - Apathy [Recovering/Resolving]
  - Nausea [Recovering/Resolving]
  - Alopecia [Not Recovered/Not Resolved]
  - Dyspnoea [None]
  - Immobile [None]
  - Aggression [None]
  - Marital problem [None]
  - Blood thyroid stimulating hormone decreased [None]

NARRATIVE: CASE EVENT DATE: 20170110
